FAERS Safety Report 7151706-5 (Version None)
Quarter: 2010Q4

REPORT INFORMATION
  Report Type: 
  Country: None (occurrence: None)
  Receive Date: 20101210
  Receipt Date: 20101208
  Transmission Date: 20110411
  Serious: Yes (Death)
  Sender: FDA-Public Use
  Company Number: JP-PFIZER INC-2010166677

PATIENT
  Age: 75 Year
  Sex: Male
  Weight: 51 kg

DRUGS (6)
  1. VORICONAZOLE [Suspect]
     Indication: BRONCHOPULMONARY ASPERGILLOSIS
     Dosage: 400MG/DAY
     Route: 042
  2. VORICONAZOLE [Suspect]
     Dosage: 300MG/DAY
     Route: 042
  3. SULFAMETOXAZOL MED TRIMETOPRIM [Concomitant]
     Dosage: UNK
     Route: 048
  4. METHYLPREDNISOLONE [Concomitant]
     Dosage: UNK
     Route: 048
  5. PIPERACILLIN SODIUM/TAZOBACTAM [Concomitant]
  6. LEVOFLOXACIN [Concomitant]

REACTIONS (1)
  - ZYGOMYCOSIS [None]
